FAERS Safety Report 23000509 (Version 3)
Quarter: 2024Q1

REPORT INFORMATION
  Report Type: Spontaneous
  Country: JP (occurrence: None)
  Receive Date: 20230928
  Receipt Date: 20240321
  Transmission Date: 20240410
  Serious: Yes (Other)
  Sender: FDA-Public Use
  Company Number: 2023A052563

PATIENT
  Age: 16 Year
  Sex: Female

DRUGS (3)
  1. KOSELUGO [Suspect]
     Active Substance: SELUMETINIB
     Indication: Neurofibroma
     Dosage: TIME OF DRUG TAKING: MOSTLY WHEN HUNGRY
     Route: 048
     Dates: start: 20221228, end: 20230220
  2. KOSELUGO [Suspect]
     Active Substance: SELUMETINIB
     Indication: Neurofibroma
     Dosage: NUMBER OF SEPARATE DOSAGES UNKNOWN, TIME OF DRUG TAKING: MOSTLY WHEN HUNGRY
     Route: 048
     Dates: start: 20230320
  3. KOSELUGO [Suspect]
     Active Substance: SELUMETINIB
     Indication: Neurofibroma
     Route: 048

REACTIONS (4)
  - Neurofibromatosis [Not Recovered/Not Resolved]
  - Neurofibrosarcoma [Unknown]
  - Anaemia [Recovered/Resolved]
  - Cytopenia [Recovered/Resolved]

NARRATIVE: CASE EVENT DATE: 20230220
